FAERS Safety Report 12990885 (Version 1)
Quarter: 2016Q4

REPORT INFORMATION
  Report Type: Spontaneous
  Country: US (occurrence: US)
  Receive Date: 20161130
  Receipt Date: 20161130
  Transmission Date: 20170207
  Serious: Yes (Other)
  Sender: FDA-Public Use
  Company Number: None

PATIENT
  Age: 5 Month
  Sex: Male
  Weight: 8.1 kg

DRUGS (1)
  1. BABY TEETHING (HYLAND HOMEOPATHIC) [Suspect]
     Active Substance: HOMEOPATHICS
     Indication: TEETHING
     Route: 004
     Dates: start: 20161107, end: 20161130

REACTIONS (4)
  - Seizure like phenomena [None]
  - Eye movement disorder [None]
  - Unresponsive to stimuli [None]
  - Muscle twitching [None]

NARRATIVE: CASE EVENT DATE: 20161129
